FAERS Safety Report 4439091-0 (Version None)
Quarter: 2004Q3

REPORT INFORMATION
  Report Type: 
  Country: None (occurrence: None)
  Receive Date: 20040830
  Receipt Date: 20040816
  Transmission Date: 20050211
  Serious: Yes (Hospitalization)
  Sender: FDA-Public Use
  Company Number: 04-0058PO

PATIENT
  Age: 77 Year
  Sex: Female

DRUGS (4)
  1. MEFENAMIC ACID [Suspect]
     Dosage: 500MG, PO
     Route: 048
     Dates: end: 20040624
  2. ACENOCOUMAROL [Suspect]
     Dosage: 1 MG, PO
     Route: 048
     Dates: end: 20040624
  3. CALCITONIN-SALMON [Concomitant]
  4. PHENYLPROPANOLAMINE HCL [Concomitant]

REACTIONS (11)
  - ANAEMIA [None]
  - DRY SKIN [None]
  - GASTRITIS EROSIVE [None]
  - HAEMATEMESIS [None]
  - HAEMATOCHEZIA [None]
  - MUCOSAL DRYNESS [None]
  - PALLOR [None]
  - PROTHROMBIN TIME PROLONGED [None]
  - RENAL FAILURE [None]
  - TACHYCARDIA [None]
  - TACHYPNOEA [None]
